FAERS Safety Report 6753762-2 (Version None)
Quarter: 2010Q2

REPORT INFORMATION
  Report Type: 
  Country: None (occurrence: None)
  Receive Date: 20100603
  Receipt Date: 20100524
  Transmission Date: 20101027
  Serious: Yes (Other)
  Sender: FDA-Public Use
  Company Number: US-JNJFOC-20100303658

PATIENT
  Sex: Female
  Weight: 104.33 kg

DRUGS (2)
  1. REMICADE [Suspect]
     Indication: CROHN'S DISEASE
     Route: 042
  2. PREDNISONE TAB [Concomitant]
     Indication: CROHN'S DISEASE

REACTIONS (3)
  - APPARENT DEATH [None]
  - DYSPNOEA [None]
  - HYPERSENSITIVITY [None]
